FAERS Safety Report 16779475 (Version 5)
Quarter: 2019Q4

REPORT INFORMATION
  Report Type: Spontaneous
  Country: US (occurrence: US)
  Receive Date: 20190906
  Receipt Date: 20191213
  Transmission Date: 20200122
  Serious: No
  Sender: FDA-Public Use
  Company Number: US-PFIZER INC-2019385774

PATIENT
  Age: 50 Year
  Sex: Male
  Weight: 72.57 kg

DRUGS (4)
  1. BICILLIN L-A [Suspect]
     Active Substance: PENICILLIN G BENZATHINE
     Dosage: 400000 IU, SINGLE
     Dates: start: 20190725, end: 20190725
  2. BICILLIN L-A [Suspect]
     Active Substance: PENICILLIN G BENZATHINE
     Dosage: 400000 IU, SINGLE
     Dates: start: 20190730, end: 20190730
  3. BICILLIN L-A [Suspect]
     Active Substance: PENICILLIN G BENZATHINE
     Indication: LYME DISEASE
     Dosage: 400000 IU, SINGLE
     Dates: start: 20190623, end: 20190623
  4. BICILLIN L-A [Suspect]
     Active Substance: PENICILLIN G BENZATHINE
     Dosage: 400000 IU, SINGLE
     Dates: start: 20190629, end: 20190629

REACTIONS (12)
  - Jaundice [Recovered/Resolved]
  - Oral candidiasis [Recovered/Resolved]
  - Nasopharyngitis [Recovered/Resolved]
  - Candida infection [Recovered/Resolved]
  - Product use in unapproved indication [Recovered/Resolved]
  - Fatigue [Recovered/Resolved]
  - Oropharyngeal pain [Recovered/Resolved]
  - Gallbladder disorder [Unknown]
  - Off label use [Recovered/Resolved]
  - Blood bilirubin increased [Recovered/Resolved]
  - Liver disorder [Recovered/Resolved]
  - Cholelithiasis [Recovered/Resolved]

NARRATIVE: CASE EVENT DATE: 2019
